FAERS Safety Report 5804230-3 (Version None)
Quarter: 2008Q3

REPORT INFORMATION
  Report Type: 
  Country: None (occurrence: None)
  Receive Date: 20080707
  Receipt Date: 20080624
  Transmission Date: 20090109
  Serious: Yes (Death, Other)
  Sender: FDA-Public Use
  Company Number: 2008AL007745

PATIENT
  Age: 56 Year
  Sex: Female

DRUGS (7)
  1. DIAZEPAM [Suspect]
  2. CITALOPRAM HYDROBROMIDE [Suspect]
     Dosage: PO
     Route: 048
  3. TRAZODONE HCL [Suspect]
     Dosage: PO
     Route: 048
  4. BUPROPION HYDROCHLORIDE [Suspect]
     Dosage: PO
     Route: 048
  5. PAREGORIC LIQUID USP (ALPHARMA) (PAREGORIC LIQUID USP (ALPHARMA)) [Suspect]
  6. CELECOXIB [Concomitant]
  7. DIPHENHYDRAMINE HCL [Concomitant]

REACTIONS (2)
  - ALCOHOL ABUSE [None]
  - DRUG ABUSE [None]
